FAERS Safety Report 19618936 (Version 2)
Quarter: 2022Q2

REPORT INFORMATION
  Report Type: Spontaneous
  Country: US (occurrence: None)
  Receive Date: 20210727
  Receipt Date: 20220621
  Transmission Date: 20220721
  Serious: No
  Sender: FDA-Public Use
  Company Number: US-ROCHE-2787196

PATIENT
  Age: 60 Year
  Sex: Female

DRUGS (3)
  1. CAPECITABINE [Suspect]
     Active Substance: CAPECITABINE
     Indication: Product used for unknown indication
     Route: 048
  2. CAPECITABINE [Suspect]
     Active Substance: CAPECITABINE
     Dosage: SEVEN DAYS OFF AND SEVEN DAYS ON
     Route: 048
  3. TUKYSA [Suspect]
     Active Substance: TUCATINIB
     Indication: Breast cancer female
     Route: 065

REACTIONS (5)
  - Diarrhoea [Unknown]
  - Palmar-plantar erythrodysaesthesia syndrome [Recovering/Resolving]
  - Blood magnesium decreased [Unknown]
  - Blood phosphorus decreased [Unknown]
  - Neuropathy peripheral [Unknown]
